FAERS Safety Report 25792878 (Version 1)
Quarter: 2025Q3

REPORT INFORMATION
  Report Type: Spontaneous
  Country: US (occurrence: US)
  Receive Date: 20250911
  Receipt Date: 20250911
  Transmission Date: 20251021
  Serious: No
  Sender: MYLAN
  Company Number: US-MYLANLABS-2025M1069524

PATIENT
  Age: 82 Year
  Sex: Female

DRUGS (4)
  1. BREYNA [Suspect]
     Active Substance: BUDESONIDE\FORMOTEROL FUMARATE
     Indication: Product used for unknown indication
     Dosage: 80 PER 4.5 MICROGRAM, BID (TWICE A DAY)
  2. BREYNA [Suspect]
     Active Substance: BUDESONIDE\FORMOTEROL FUMARATE
     Dosage: 80 PER 4.5 MICROGRAM, BID (TWICE A DAY)
     Route: 065
  3. BREYNA [Suspect]
     Active Substance: BUDESONIDE\FORMOTEROL FUMARATE
     Dosage: 80 PER 4.5 MICROGRAM, BID (TWICE A DAY)
     Route: 065
  4. BREYNA [Suspect]
     Active Substance: BUDESONIDE\FORMOTEROL FUMARATE
     Dosage: 80 PER 4.5 MICROGRAM, BID (TWICE A DAY)

REACTIONS (3)
  - Pharyngeal paraesthesia [Unknown]
  - Throat irritation [Unknown]
  - Device issue [Unknown]

NARRATIVE: CASE EVENT DATE: 20250812
